FAERS Safety Report 25417929 (Version 1)
Quarter: 2025Q2

REPORT INFORMATION
  Report Type: Spontaneous
  Country: US (occurrence: None)
  Receive Date: 20250606
  Receipt Date: 20250606
  Transmission Date: 20250716
  Serious: Yes (Hospitalization)
  Sender: FDA-CTU
  Company Number: None

PATIENT
  Age: 95 Year
  Sex: Male
  Weight: 65 kg

DRUGS (3)
  1. AMLODIPINE BESYLATE [Suspect]
     Active Substance: AMLODIPINE BESYLATE
     Indication: Hypertension
  2. TAMSULOSIN HYDROCHLORIDE [Suspect]
     Active Substance: TAMSULOSIN HYDROCHLORIDE
  3. NITROFURANTOIN [Suspect]
     Active Substance: NITROFURANTOIN

REACTIONS (4)
  - Hypotension [None]
  - Syncope [None]
  - Sepsis [None]
  - Asthenia [None]

NARRATIVE: CASE EVENT DATE: 20250506
